FAERS Safety Report 21554408 (Version 1)
Quarter: 2022Q4

REPORT INFORMATION
  Report Type: Spontaneous
  Country: GB (occurrence: GB)
  Receive Date: 20221104
  Receipt Date: 20221104
  Transmission Date: 20230112
  Serious: Yes (Other)
  Sender: FDA-Public Use
  Company Number: None

PATIENT
  Age: 62 Year
  Sex: Male
  Weight: 97 kg

DRUGS (3)
  1. HYDRALAZINE [Suspect]
     Active Substance: HYDRALAZINE HYDROCHLORIDE
     Indication: Product used for unknown indication
     Dosage: 25 MILLIGRAM, BID
     Route: 065
     Dates: start: 20221003
  2. FOLIC ACID [Concomitant]
     Active Substance: FOLIC ACID
     Indication: Vitamin D deficiency
     Dosage: 1 DOSAGE FORM, QD
     Route: 065
     Dates: start: 20220729
  3. STEXEROL D3 [Concomitant]
     Indication: Vitamin D deficiency
     Dosage: 2 TABLETS EVERY WEEK FOR 6 WEEKS, DAILY DOSE VIT D AT A DOSE OF 1000 UNITS/DAY
     Route: 065
     Dates: start: 20220729, end: 20220910

REACTIONS (1)
  - Joint swelling [Recovered/Resolved]

NARRATIVE: CASE EVENT DATE: 20221004
